FAERS Safety Report 7286266-1 (Version None)
Quarter: 2011Q1

REPORT INFORMATION
  Report Type: 
  Country: None (occurrence: None)
  Receive Date: 20110210
  Receipt Date: 20110202
  Transmission Date: 20110831
  Serious: Yes (Life-Threatening)
  Sender: FDA-Public Use
  Company Number: PHHY2010JP68482

PATIENT
  Age: 76 Year
  Sex: Female

DRUGS (3)
  1. AMLODIPINE [Concomitant]
  2. FEMARA [Suspect]
     Indication: BREAST CANCER
     Route: 048
  3. GLYBURIDE [Concomitant]

REACTIONS (1)
  - HYPOKALAEMIA [None]
